FAERS Safety Report 8923940 (Version 2)
Quarter: 2013Q2

REPORT INFORMATION
  Report Type: Spontaneous
  Country: DE (occurrence: DE)
  Receive Date: 20121126
  Receipt Date: 20130626
  Transmission Date: 20140414
  Serious: Yes (Hospitalization, Other)
  Sender: FDA-Public Use
  Company Number: DE-PFIZER INC-2012294597

PATIENT
  Age: 21 Year
  Sex: Female

DRUGS (16)
  1. SERTRALINE HCL [Suspect]
     Dosage: 25 MG, 1X/DAY
     Route: 048
     Dates: start: 20111117, end: 20111119
  2. SERTRALINE HCL [Interacting]
     Dosage: 50 MG, 1X/DAY
     Route: 048
     Dates: start: 20111120, end: 20111122
  3. SERTRALINE HCL [Interacting]
     Dosage: 25 MG, 1X/DAY
     Route: 048
     Dates: start: 20111123, end: 20111129
  4. TRIMIPRAMINE [Interacting]
     Indication: NIGHTMARE
     Dosage: 25 MG, 1X/DAY
     Route: 048
     Dates: start: 20110928, end: 20111013
  5. TRIMIPRAMINE [Interacting]
     Indication: DRY MOUTH
     Dosage: 50 MG, 1X/DAY
     Route: 048
     Dates: start: 20111014, end: 20111108
  6. TRIMIPRAMINE [Interacting]
     Dosage: 100 MG, 1X/DAY
     Route: 048
     Dates: start: 20111109, end: 20111128
  7. TRIMIPRAMINE [Interacting]
     Dosage: 50 MG, 1X/DAY
     Route: 048
     Dates: start: 20111129, end: 20111204
  8. TRIMIPRAMINE [Interacting]
     Dosage: 25 MG, 1X/DAY
     Route: 048
     Dates: start: 20111205, end: 20111206
  9. PARACETAMOL [Suspect]
     Dosage: UNK
  10. SEROQUEL [Concomitant]
     Dosage: 100 MG, 1X/DAY
     Route: 048
     Dates: start: 20111018, end: 20111018
  11. SEROQUEL [Concomitant]
     Dosage: 200 MG, 1X/DAY
     Route: 048
     Dates: start: 20111019, end: 20111108
  12. SEROQUEL [Concomitant]
     Dosage: 100 MG, 1X/DAY
     Route: 048
     Dates: start: 20111109, end: 20111128
  13. SEROQUEL [Concomitant]
     Dosage: 200 MG, 1X/DAY
     Route: 048
     Dates: start: 20111129
  14. EUTHYROX [Concomitant]
     Indication: HYPOTHYROIDISM
     Dosage: 87.5 UG, 1X/DAY
     Route: 048
     Dates: start: 20110909, end: 20110916
  15. EUTHYROX [Concomitant]
     Dosage: 75 UG, 1X/DAY
     Route: 048
     Dates: start: 20110923, end: 20111118
  16. EUTHYROX [Concomitant]
     Dosage: 50 UG/KG, 1X/DAY
     Route: 048
     Dates: start: 20111119

REACTIONS (6)
  - Suicide attempt [Unknown]
  - Sleep disorder [Unknown]
  - Yawning [Recovered/Resolved]
  - Drug interaction [Unknown]
  - Compulsions [Recovered/Resolved]
  - Fatigue [Unknown]
